FAERS Safety Report 6775256-0 (Version None)
Quarter: 2010Q2

REPORT INFORMATION
  Report Type: 
  Country: None (occurrence: None)
  Receive Date: 20100617
  Receipt Date: 20100610
  Transmission Date: 20101027
  Serious: Yes (Hospitalization)
  Sender: FDA-Public Use
  Company Number: JP-ABBOTT-10P-087-0646782-00

PATIENT
  Sex: Female

DRUGS (6)
  1. KLARICID TAB [Suspect]
     Indication: SINUSITIS
     Route: 048
     Dates: start: 20100408, end: 20100415
  2. KETEK [Suspect]
     Indication: SINUSITIS
     Route: 048
     Dates: start: 20100416, end: 20100420
  3. MUCODYNE [Suspect]
     Indication: SINUSITIS
     Route: 048
     Dates: start: 20100331, end: 20100420
  4. LYZYME [Suspect]
     Indication: SINUSITIS
     Route: 048
     Dates: start: 20100331, end: 20100420
  5. OZEX [Suspect]
     Indication: SINUSITIS
     Route: 048
     Dates: start: 20100331, end: 20100408
  6. FRADIOMYCIN SULFATE - BETAMETHASONE SODIUM PHOSPHATE [Concomitant]
     Indication: NASAL DISORDER
     Dosage: BY NEBULIZER
     Dates: start: 20100331, end: 20100421

REACTIONS (1)
  - PHOTOSENSITIVITY REACTION [None]
